FAERS Safety Report 9455342 (Version 1)
Quarter: 2013Q3

REPORT INFORMATION
  Report Type: Spontaneous
  Country: US (occurrence: US)
  Receive Date: 20130813
  Receipt Date: 20130813
  Transmission Date: 20140515
  Serious: Yes (Other)
  Sender: FDA-Public Use
  Company Number: US-BAYER-2013-096830

PATIENT
  Age: 68 Year
  Sex: Male

DRUGS (1)
  1. STIVARGA [Suspect]
     Indication: NEOPLASM
     Dosage: 160 MG, QD, AM X 21 DAYS
     Route: 048
     Dates: start: 20130219, end: 20130807

REACTIONS (3)
  - Metastatic neoplasm [None]
  - Drug ineffective for unapproved indication [None]
  - Off label use [None]
